FAERS Safety Report 4466999-2 (Version None)
Quarter: 2004Q4

REPORT INFORMATION
  Report Type: 
  Country: None (occurrence: None)
  Receive Date: 20041004
  Receipt Date: 20040922
  Transmission Date: 20050328
  Serious: Yes (Other)
  Sender: FDA-Public Use
  Company Number: 2004066772

PATIENT
  Age: 52 Year
  Sex: Male
  Weight: 79.8331 kg

DRUGS (6)
  1. DILANTIN [Suspect]
     Indication: CONVULSION
     Dosage: 800 MG (400 MG, 2 IN 1 D), ORAL
     Route: 048
     Dates: start: 20040801
  2. KALETRA [Concomitant]
  3. LAMIVUDINE (LAMIVUDINE) [Concomitant]
  4. ABACAVIR SULFATE (ABACAVIR SULFATE) [Concomitant]
  5. BACGRIM (SULFAMETHOXAZOLE, TRIMETHOPRIM) [Concomitant]
  6. OXYCOCET (OXYCODONE HYDROCHLORIDE, PARACETAMOL [Concomitant]

REACTIONS (2)
  - ABDOMINAL PAIN [None]
  - CONVULSION [None]
